FAERS Safety Report 5494293-X (Version None)
Quarter: 2007Q4

REPORT INFORMATION
  Report Type: 
  Country: None (occurrence: None)
  Receive Date: 20071015
  Receipt Date: 20070806
  Transmission Date: 20080405
  Serious: No
  Sender: FDA-Public Use
  Company Number: 2007SP002760

PATIENT
  Age: 45 Year
  Sex: Female

DRUGS (4)
  1. LUNESTA [Suspect]
     Indication: INSOMNIA
     Dosage: 3 MG;HS;ORAL   3MG;HS;ORAL  2 MG; ORAL
     Route: 048
     Dates: start: 20070613, end: 20070728
  2. LUNESTA [Suspect]
     Indication: INSOMNIA
     Dosage: 3 MG;HS;ORAL   3MG;HS;ORAL  2 MG; ORAL
     Route: 048
     Dates: start: 20070728, end: 20070801
  3. LUNESTA [Suspect]
     Indication: INSOMNIA
     Dosage: 3 MG;HS;ORAL   3MG;HS;ORAL  2 MG; ORAL
     Route: 048
     Dates: start: 20070806
  4. SYNTHROID [Concomitant]

REACTIONS (2)
  - DRUG INEFFECTIVE [None]
  - INSOMNIA [None]
